FAERS Safety Report 16622268 (Version 3)
Quarter: 2020Q4

REPORT INFORMATION
  Report Type: Report from Study
  Country: None (occurrence: NL)
  Receive Date: 20190723
  Receipt Date: 20201218
  Transmission Date: 20210113
  Serious: Yes (Death, Life-Threatening)
  Sender: FDA-Public Use
  Company Number: NL-ABBVIE-19K-114-2863911-00

PATIENT
  Sex: Male

DRUGS (2)
  1. DUODOPA [Suspect]
     Active Substance: CARBIDOPA\LEVODOPA
     Indication: PARKINSON^S DISEASE
     Dosage: STRENGTH: 20 MG/ML 5 MG/ML.
     Route: 050
     Dates: start: 20160302, end: 201907
  2. DUODOPA [Suspect]
     Active Substance: CARBIDOPA\LEVODOPA
     Dosage: CD: 7.6, CND: 3.9, ED: 3.0.?STRENGTH: 20 MG/ML 5 MG/ML.
     Route: 050
     Dates: start: 201907

REACTIONS (7)
  - General physical health deterioration [Not Recovered/Not Resolved]
  - Dysphagia [Not Recovered/Not Resolved]
  - Infection [Fatal]
  - Muscle rigidity [Not Recovered/Not Resolved]
  - Terminal state [Fatal]
  - Parkinson^s disease [Fatal]
  - Pain [Not Recovered/Not Resolved]
